FAERS Safety Report 5816944-X (Version None)
Quarter: 2008Q3

REPORT INFORMATION
  Report Type: 
  Country: None (occurrence: None)
  Receive Date: 20080722
  Receipt Date: 20080711
  Transmission Date: 20090109
  Serious: Yes (Hospitalization, Other)
  Sender: FDA-Public Use
  Company Number: PHEH2008US06180

PATIENT
  Sex: Female
  Weight: 79.9 kg

DRUGS (20)
  1. DICLOFENAC [Suspect]
     Dosage: UNK
  2. DIOVAN [Suspect]
     Dosage: UNK
  3. ENBREL [Suspect]
     Indication: RHEUMATOID ARTHRITIS
     Dosage: 50 MG, 1 IN 1 WEEKS SC
     Dates: start: 20000212, end: 20060815
  4. FUROSEMIDE [Suspect]
     Dosage: UNK
  5. FLUOXETINE [Concomitant]
     Dosage: 10 MG, QD
  6. PANTOPRAZOLE SODIUM [Concomitant]
     Dosage: 40 MG, BID
  7. PREDNISONE TAB [Concomitant]
     Dosage: UNK
  8. ATORVASTATIN CALCIUM [Concomitant]
     Dosage: 10 MG, QD
  9. CARVEDILOL [Concomitant]
     Dosage: 3.125 MG, BID
  10. IRON [Concomitant]
     Dosage: 325 MG, BID
  11. ALBUTEROL SULFATE [Concomitant]
     Dosage: UNK
  12. IPRATROPIUM BROMIDE [Concomitant]
     Dosage: UNK
  13. WARFARIN SODIUM [Concomitant]
     Dosage: 4 MG, QD
  14. ERGOCALCIFEROL [Concomitant]
     Dosage: 400 IU, BID
  15. CALCIUM CARBONATE [Concomitant]
     Dosage: 500 MG, TID
  16. POTASSIUM CHLORIDE [Concomitant]
     Dosage: 10 MEQ, QD
  17. ACETAMINOPHEN AND OXYCODONE HCL [Concomitant]
     Dosage: UNK
  18. NIFEDIPINE [Concomitant]
     Dosage: 30 MG, QD
  19. TIOTROPIUM [Concomitant]
     Dosage: 18 UG, QD
  20. PROCRIT [Concomitant]
     Dosage: 20000 IU, QW2

REACTIONS (26)
  - ANAEMIA [None]
  - BLOOD CREATININE INCREASED [None]
  - BLOOD UREA INCREASED [None]
  - BRONCHITIS [None]
  - CARDIAC FAILURE CONGESTIVE [None]
  - CARDIOMYOPATHY [None]
  - CATARACT [None]
  - CELLULITIS [None]
  - CHRONIC OBSTRUCTIVE PULMONARY DISEASE [None]
  - DEEP VEIN THROMBOSIS [None]
  - DEHYDRATION [None]
  - GLOMERULAR FILTRATION RATE DECREASED [None]
  - GROIN PAIN [None]
  - HAEMATOCHEZIA [None]
  - HAEMATURIA [None]
  - HYPERLIPIDAEMIA [None]
  - HYPERTENSION [None]
  - MYOCARDIAL INFARCTION [None]
  - PAIN [None]
  - PNEUMONIA [None]
  - RENAL ARTERY STENOSIS [None]
  - RENAL ATROPHY [None]
  - RENAL FAILURE ACUTE [None]
  - RENAL FAILURE CHRONIC [None]
  - RENAL TUBULAR NECROSIS [None]
  - URINARY TRACT INFECTION [None]
